FAERS Safety Report 24263701 (Version 1)
Quarter: 2024Q3

REPORT INFORMATION
  Report Type: Spontaneous
  Country: AU (occurrence: None)
  Receive Date: 20240829
  Receipt Date: 20240829
  Transmission Date: 20241017
  Serious: Yes (Other)
  Sender: ORION
  Company Number: AU-PFIZER INC-PV202400106657

PATIENT
  Age: 25 Year
  Sex: Female
  Weight: 116 kg

DRUGS (6)
  1. METHOTREXATE [Suspect]
     Active Substance: METHOTREXATE
     Indication: Crohn^s disease
  2. METHOTREXATE [Suspect]
     Active Substance: METHOTREXATE
     Indication: Inflammatory bowel disease
  3. INFLIXIMAB [Suspect]
     Active Substance: INFLIXIMAB
     Indication: Crohn^s disease
     Dates: start: 202402
  4. INFLIXIMAB [Suspect]
     Active Substance: INFLIXIMAB
     Indication: Inflammatory bowel disease
     Dosage: 4 WEEKLY
  5. FOLIC ACID [Concomitant]
     Active Substance: FOLIC ACID
     Indication: Inflammatory bowel disease
  6. HYDROCORTISONE [Concomitant]
     Active Substance: HYDROCORTISONE\HYDROCORTISONE ACETATE
     Indication: Inflammatory bowel disease
     Dates: start: 20240618

REACTIONS (5)
  - Anal abscess [Unknown]
  - Condition aggravated [Unknown]
  - Anal fistula [Unknown]
  - Enterocolitis [Unknown]
  - Product use in unapproved indication [Unknown]

NARRATIVE: CASE EVENT DATE: 20240801
